FAERS Safety Report 13450711 (Version 1)
Quarter: 2017Q2

REPORT INFORMATION
  Report Type: Spontaneous
  Country: US (occurrence: US)
  Receive Date: 20170418
  Receipt Date: 20170418
  Transmission Date: 20170830
  Serious: No
  Sender: FDA-Public Use
  Company Number: PHEH2017US010809

PATIENT
  Age: 64 Year
  Sex: Male

DRUGS (1)
  1. AFINITOR [Suspect]
     Active Substance: EVEROLIMUS
     Indication: CARCINOID SYNDROME
     Route: 048

REACTIONS (10)
  - Hypotension [Unknown]
  - Body temperature increased [Unknown]
  - Dysuria [Unknown]
  - Respiratory symptom [Unknown]
  - Hypertension [Unknown]
  - Product use in unapproved indication [Unknown]
  - Tachycardia [Unknown]
  - Malaise [Unknown]
  - Diarrhoea [Unknown]
  - Pollakiuria [Unknown]

NARRATIVE: CASE EVENT DATE: 20161118
